FAERS Safety Report 5150768-4 (Version None)
Quarter: 2006Q4

REPORT INFORMATION
  Report Type: 
  Country: None (occurrence: None)
  Receive Date: 20061108
  Receipt Date: 20061030
  Transmission Date: 20070319
  Serious: Yes (Death, Other)
  Sender: FDA-Public Use
  Company Number: 2006JP000509

PATIENT
  Age: 69 Year
  Sex: Male

DRUGS (4)
  1. PROGRAF [Suspect]
     Indication: BONE MARROW TRANSPLANT
  2. FLUDARABINE PHOSPHATE [Concomitant]
  3. MELPHALAN (MELPHALAN) [Concomitant]
  4. METHOTREXATE [Concomitant]

REACTIONS (2)
  - STAPHYLOCOCCAL SEPSIS [None]
  - VENOOCCLUSIVE LIVER DISEASE [None]
